FAERS Safety Report 14934918 (Version 3)
Quarter: 2018Q2

REPORT INFORMATION
  Report Type: Report from Study
  Country: KR (occurrence: KR)
  Receive Date: 20180524
  Receipt Date: 20180622
  Transmission Date: 20180711
  Serious: Yes (Death, Hospitalization, Other)
  Sender: FDA-Public Use
  Company Number: KR-UNITED THERAPEUTICS-UNT-2018-006396

PATIENT
  Age: 81 Year
  Sex: Male
  Weight: 54.1 kg

DRUGS (6)
  1. IRINOTECAN [Suspect]
     Active Substance: IRINOTECAN
     Dosage: UNK, CYCLE 1
     Route: 041
     Dates: start: 20180323
  2. DINUTUXIMAB [Suspect]
     Active Substance: DINUTUXIMAB
     Indication: SMALL CELL LUNG CANCER
     Dosage: 29.93 MG, TOTAL DAILY DOSE, CYCLE 2
     Route: 041
     Dates: start: 20180413
  3. DINUTUXIMAB [Suspect]
     Active Substance: DINUTUXIMAB
     Dosage: 28.18 MG, TOTAL DAILY DOSE, CYCLE 3
     Route: 041
     Dates: start: 20180502
  4. IRINOTECAN [Suspect]
     Active Substance: IRINOTECAN
     Dosage: 483 MG, TOTAL DAILY DOSE, CYCLE 3
     Route: 041
     Dates: start: 20180502
  5. DINUTUXIMAB [Suspect]
     Active Substance: DINUTUXIMAB
     Dosage: UNK, CYCLE 1
     Route: 041
     Dates: start: 20180323
  6. IRINOTECAN [Suspect]
     Active Substance: IRINOTECAN
     Indication: SMALL CELL LUNG CANCER
     Dosage: 598.5 MG, TOTAL DAILY DOSE, CYCLE 2
     Route: 041
     Dates: start: 20180413

REACTIONS (4)
  - Pneumonia [Fatal]
  - Dysuria [Recovered/Resolved]
  - Small cell lung cancer [Fatal]
  - Neutropenia [Recovered/Resolved]

NARRATIVE: CASE EVENT DATE: 20180412
